FAERS Safety Report 4955270-8 (Version None)
Quarter: 2006Q1

REPORT INFORMATION
  Report Type: 
  Country: None (occurrence: None)
  Receive Date: 20060328
  Receipt Date: 20060223
  Transmission Date: 20060701
  Serious: Yes (Other)
  Sender: FDA-Public Use
  Company Number: PHEH2006US02966

PATIENT
  Age: 86 Year
  Sex: Female
  Weight: 81.179 kg

DRUGS (17)
  1. CAPTOPRIL [Concomitant]
     Indication: HYPERTENSION
     Dosage: 50 MG, BID
  2. CARTIA XT [Concomitant]
     Indication: HYPERTENSION
     Dosage: 240 MG, QD
  3. LEVOXYL [Concomitant]
     Indication: HYPOTHYROIDISM
     Dosage: 100 MCG QD
  4. PRILOSEC [Concomitant]
     Indication: PEPTIC ULCER
     Dosage: 20 MG, QD
  5. FUROSEMIDE [Concomitant]
     Indication: SWELLING
     Dosage: 20-40MG QD
  6. MICRO-K [Concomitant]
     Indication: MINERAL SUPPLEMENTATION
     Dosage: 600 MG, TID
  7. MORPHINE [Concomitant]
     Indication: PAIN
     Dosage: 10MG/5ML Q4H
     Route: 048
  8. XANAX [Concomitant]
     Indication: NERVOUSNESS
     Dosage: 0.25 MG, PRN
  9. NORTRIPTYLINE HCL [Concomitant]
     Indication: SLEEP DISORDER
     Dosage: 20 MG, QHS
  10. VICODIN [Concomitant]
     Indication: PAIN
     Dosage: UNK, PRN
  11. IRON PREPARATIONS [Concomitant]
     Indication: ANAEMIA
  12. FOLIC ACID [Concomitant]
     Indication: ANAEMIA
  13. FEMARA [Concomitant]
     Indication: BREAST CANCER
     Dosage: 2.5 MG, QD
     Dates: start: 20000101, end: 20040101
  14. AREDIA [Suspect]
     Indication: BREAST CANCER METASTATIC
     Dosage: 90 MG, QMO
     Route: 042
     Dates: start: 20001122, end: 20050721
  15. ZOMETA [Suspect]
     Dates: start: 20021003
  16. AROMYCIN [Concomitant]
     Indication: BREAST CANCER
     Dosage: 25 MG, QD
  17. DURAGESIC-100 [Concomitant]
     Indication: PAIN
     Dosage: 100 MCG Q3DAYS

REACTIONS (7)
  - BONE DISORDER [None]
  - BONE LESION [None]
  - DENTURE WEARER [None]
  - ERYTHEMA [None]
  - GINGIVAL ULCERATION [None]
  - INFLAMMATION [None]
  - SWELLING [None]
